FAERS Safety Report 18668591 (Version 1)
Quarter: 2020Q4

REPORT INFORMATION
  Report Type: Spontaneous
  Country: US (occurrence: US)
  Receive Date: 20201223
  Receipt Date: 20201223
  Transmission Date: 20210114
  Serious: Yes (Death)
  Sender: FDA-Public Use
  Company Number: None

PATIENT
  Age: 69 Year
  Sex: Male
  Weight: 84 kg

DRUGS (8)
  1. CD25/TREG-DEPLETED DLI 3X10^7 CD3+ CELLS/KG [Suspect]
     Active Substance: LYMPHOCYTES
     Indication: ACUTE MYELOID LEUKAEMIA RECURRENT
     Dosage: ?          OTHER FREQUENCY:DLI ON DAY 1 ONLY;?
     Route: 042
     Dates: start: 20201001, end: 20201001
  2. ACYCLOVIR. [Concomitant]
     Active Substance: ACYCLOVIR
     Dates: start: 20200814, end: 20201205
  3. FOLIC ACID. [Concomitant]
     Active Substance: FOLIC ACID
     Dates: start: 20200408, end: 20201205
  4. MAGNESIUM OXIDE. [Concomitant]
     Active Substance: MAGNESIUM OXIDE
     Dates: start: 20201001, end: 20201205
  5. BETAMETHASONE DIPROPRIONATE 0.05% CREAM [Concomitant]
     Dates: start: 20201019, end: 20201205
  6. IPILIMUMAB [Suspect]
     Active Substance: IPILIMUMAB
     Indication: ACUTE MYELOID LEUKAEMIA RECURRENT
     Dosage: ?          OTHER FREQUENCY:4 CYCLES Q21 DAYS;?
     Route: 042
     Dates: start: 20201001, end: 20201001
  7. SULFAMETHOXAZOLE-TRIMETHOPRIM [Concomitant]
     Active Substance: SULFAMETHOXAZOLE\TRIMETHOPRIM
     Dates: start: 20200918, end: 20201205
  8. THERAPEUTIC MULTIVITAMIN TABLET [Concomitant]
     Dates: start: 20201006, end: 20201205

REACTIONS (15)
  - Nausea [None]
  - Mental status changes [None]
  - Blood sodium decreased [None]
  - Pneumonia [None]
  - Platelet count decreased [None]
  - Aspergillus test positive [None]
  - Acute kidney injury [None]
  - Metabolic acidosis [None]
  - Vomiting [None]
  - Pneumonia aspiration [None]
  - Graft versus host disease in skin [None]
  - Respiratory failure [None]
  - Abdominal pain [None]
  - Diarrhoea [None]
  - Hyperbilirubinaemia [None]

NARRATIVE: CASE EVENT DATE: 20201205
